FAERS Safety Report 20880296 (Version 1)
Quarter: 2022Q2

REPORT INFORMATION
  Report Type: Spontaneous
  Country: US (occurrence: US)
  Receive Date: 20220526
  Receipt Date: 20220526
  Transmission Date: 20220721
  Serious: Yes (Other)
  Sender: FDA-Public Use
  Company Number: US-PURDUE-USA-2022-0293983

PATIENT

DRUGS (2)
  1. OXYCODONE HYDROCHLORIDE [Suspect]
     Active Substance: OXYCODONE HYDROCHLORIDE
     Indication: Product used for unknown indication
     Dosage: UNKNOWN
     Route: 064
  2. MORPHINE [Suspect]
     Active Substance: MORPHINE
     Indication: Product used for unknown indication
     Dosage: UNKNOWN
     Route: 064

REACTIONS (12)
  - Foetal exposure during pregnancy [Unknown]
  - Exomphalos [Unknown]
  - Patent ductus arteriosus [Unknown]
  - Developmental delay [Unknown]
  - Otospondylomegaepiphyseal dysplasia [Unknown]
  - Cleft lip and palate [Unknown]
  - Cleft palate [Unknown]
  - Haemangioma [Unknown]
  - Inguinal hernia [Unknown]
  - Plagiocephaly [Unknown]
  - Short stature [Unknown]
  - Unevaluable event [Unknown]
